FAERS Safety Report 6996688-1 (Version None)
Quarter: 2010Q3

REPORT INFORMATION
  Report Type: 
  Country: None (occurrence: None)
  Receive Date: 20100918
  Receipt Date: 20090619
  Transmission Date: 20110219
  Serious: No
  Sender: FDA-Public Use
  Company Number: US-WYE-H09866809

PATIENT
  Sex: Female

DRUGS (1)
  1. PREMPHASE 14/14 [Suspect]
     Indication: HORMONE REPLACEMENT THERAPY
     Dosage: .625MG/5MG
     Route: 048
     Dates: start: 20040101

REACTIONS (4)
  - HYPERSENSITIVITY [None]
  - RASH GENERALISED [None]
  - RASH PRURITIC [None]
  - ROSACEA [None]
